FAERS Safety Report 14175975 (Version 2)
Quarter: 2018Q2

REPORT INFORMATION
  Report Type: Spontaneous
  Country: US (occurrence: US)
  Receive Date: 20171109
  Receipt Date: 20180530
  Transmission Date: 20180711
  Serious: No
  Sender: FDA-Public Use
  Company Number: US-LEXICON PHARMACEUTICALS, INC-17-1606-01000

PATIENT
  Sex: Male

DRUGS (19)
  1. TELOTRISTAT ETHYL [Suspect]
     Active Substance: TELOTRISTAT ETHYL
  2. K-PHOS [Concomitant]
     Active Substance: POTASSIUM PHOSPHATE, MONOBASIC
  3. TYLENOL [Concomitant]
     Active Substance: ACETAMINOPHEN
  4. SANDOSTATIN [Concomitant]
     Active Substance: OCTREOTIDE ACETATE
  5. LOPERAMIDE [Concomitant]
     Active Substance: LOPERAMIDE
  6. CREON [Concomitant]
     Active Substance: PANCRELIPASE AMYLASE\PANCRELIPASE LIPASE\PANCRELIPASE PROTEASE
  7. MELATONIN [Concomitant]
     Active Substance: MELATONIN
  8. QUESTRAN [Concomitant]
     Active Substance: CHOLESTYRAMINE
  9. TELOTRISTAT ETHYL [Suspect]
     Active Substance: TELOTRISTAT ETHYL
     Indication: CARCINOID TUMOUR
     Route: 048
     Dates: start: 20170422
  10. BELLADONNA-OPIUM [Concomitant]
  11. FIBER [Concomitant]
     Active Substance: PSYLLIUM HUSK
  12. MULTIVITAMIN [Concomitant]
     Active Substance: VITAMINS
  13. DIPHENOXYLATE-ATROPINE [Concomitant]
     Active Substance: ATROPINE\DIPHENOXYLATE
  14. SIMETHICONE (DIMETHICONE) [Concomitant]
     Active Substance: DIMETHICONE
  15. OMEGA3 [Concomitant]
  16. MEGACE ORAL SUS [Concomitant]
  17. METAMUCIL [Concomitant]
     Active Substance: PLANTAGO SEED
  18. ROXICODONE [Concomitant]
     Active Substance: OXYCODONE HYDROCHLORIDE
  19. ZOFRAN [Concomitant]
     Active Substance: ONDANSETRON HYDROCHLORIDE

REACTIONS (1)
  - Diarrhoea [Not Recovered/Not Resolved]

NARRATIVE: CASE EVENT DATE: 2017
